FAERS Safety Report 25400799 (Version 1)
Quarter: 2025Q2

REPORT INFORMATION
  Report Type: Spontaneous
  Country: US (occurrence: None)
  Receive Date: 20250603
  Receipt Date: 20250603
  Transmission Date: 20250716
  Serious: Yes (Hospitalization)
  Sender: FDA-CTU
  Company Number: None

PATIENT
  Age: 92 Year
  Sex: Male

DRUGS (1)
  1. FUROSEMIDE [Suspect]
     Active Substance: FUROSEMIDE
     Indication: Cardiac failure congestive
     Dosage: FREQUENCY : TWICE A DAY;?
     Route: 048
     Dates: end: 20250405

REACTIONS (8)
  - Blood creatinine increased [None]
  - Hypotension [None]
  - Shock [None]
  - Aspiration [None]
  - Hypophagia [None]
  - Sepsis [None]
  - Polyuria [None]
  - Cardiac disorder [None]

NARRATIVE: CASE EVENT DATE: 20250406
